FAERS Safety Report 7930525-3 (Version None)
Quarter: 2011Q4

REPORT INFORMATION
  Report Type: 
  Country: None (occurrence: None)
  Receive Date: 20111117
  Receipt Date: 20111117
  Transmission Date: 20120403
  Serious: Yes (Death)
  Sender: FDA-Public Use
  Company Number: None

PATIENT
  Age: 72 Year
  Sex: Male
  Weight: 93.441 kg

DRUGS (6)
  1. PHENOZOPYRID [Concomitant]
  2. LYRICA [Suspect]
     Indication: HYPOAESTHESIA
     Dosage: 75MG NIGHTLY ORALLY
     Route: 048
     Dates: start: 20110613, end: 20110616
  3. AMARYL [Concomitant]
  4. TRAMADOL/APAP (ULTRACET) [Concomitant]
  5. ZESTORETIC [Concomitant]
  6. CIPROFLOXACIN [Concomitant]

REACTIONS (1)
  - UNRESPONSIVE TO STIMULI [None]
